FAERS Safety Report 25189979 (Version 8)
Quarter: 2025Q4

REPORT INFORMATION
  Report Type: Spontaneous
  Country: JP (occurrence: JP)
  Receive Date: 20250411
  Receipt Date: 20251027
  Transmission Date: 20260117
  Serious: Yes (Death, Hospitalization, Other)
  Sender: ALEXION PHARMACEUTICALS
  Company Number: JP-ASTRAZENECA-250034730_013120_P_1

PATIENT
  Age: 73 Year
  Sex: Male
  Weight: 81 kg

DRUGS (6)
  1. IMFINZI [Suspect]
     Active Substance: DURVALUMAB
     Indication: Hepatocellular carcinoma
     Dosage: 1500 MILLIGRAM, Q4W
     Dates: start: 20250212, end: 20250317
  2. IMJUDO [Suspect]
     Active Substance: TREMELIMUMAB\TREMELIMUMAB-ACTL
     Indication: Hepatocellular carcinoma
     Dosage: 300 MILLIGRAM
     Dates: start: 20250212, end: 20250212
  3. OMEGA-3-ACID ETHYL ESTERS [Concomitant]
     Active Substance: OMEGA-3-ACID ETHYL ESTERS
     Dosage: 2 GRAM, QD
  4. TOCOPHERYL NICOTINATE, D-.ALPHA. [Concomitant]
     Active Substance: TOCOPHERYL NICOTINATE, D-.ALPHA.
     Dosage: 100 MILLIGRAM, TID
  5. NAPROXEN SODIUM [Concomitant]
     Active Substance: NAPROXEN SODIUM
  6. FEXOFENADINE [Concomitant]
     Active Substance: FEXOFENADINE HYDROCHLORIDE

REACTIONS (10)
  - Pyrexia [Fatal]
  - Encephalitis [Fatal]
  - Altered state of consciousness [Fatal]
  - Epilepsy [Fatal]
  - Hypoxia [Unknown]
  - Blood pressure decreased [Unknown]
  - Eye movement disorder [Recovering/Resolving]
  - Escherichia infection [Unknown]
  - Pathogen resistance [Unknown]
  - Pruritus [Recovering/Resolving]

NARRATIVE: CASE EVENT DATE: 20250320
